FAERS Safety Report 7395712-4 (Version None)
Quarter: 2011Q2

REPORT INFORMATION
  Report Type: 
  Country: None (occurrence: None)
  Receive Date: 20110405
  Receipt Date: 20101230
  Transmission Date: 20111010
  Serious: No
  Sender: FDA-Public Use
  Company Number: US-BAYER-2011-028314

PATIENT
  Sex: Male
  Weight: 68 kg

DRUGS (1)
  1. ONE A DAY MEN'S PRO EDGE MULTIVITAMIN [Suspect]
     Indication: VITAMIN SUPPLEMENTATION
     Route: 048

REACTIONS (2)
  - NAUSEA [None]
  - VOMITING [None]
